FAERS Safety Report 26171870 (Version 1)
Quarter: 2025Q4

REPORT INFORMATION
  Report Type: Spontaneous
  Country: EU (occurrence: EU)
  Receive Date: 20251217
  Receipt Date: 20251217
  Transmission Date: 20260119
  Serious: Yes (Hospitalization, Other)
  Sender: SERVIER
  Company Number: EU-SERVIER-S25018025

PATIENT

DRUGS (2)
  1. TIBSOVO [Suspect]
     Active Substance: IVOSIDENIB
     Indication: Acute myeloid leukaemia
     Dosage: 2 DF, QD
     Route: 048
     Dates: start: 20251124, end: 20251210
  2. TIBSOVO [Suspect]
     Active Substance: IVOSIDENIB
     Dosage: 2 DF, QD
     Route: 048
     Dates: start: 20251211

REACTIONS (3)
  - Bronchopulmonary aspergillosis [Recovering/Resolving]
  - Erythroblastosis [Unknown]
  - Intentional dose omission [Recovered/Resolved]

NARRATIVE: CASE EVENT DATE: 20251204
